FAERS Safety Report 13831754 (Version 1)
Quarter: 2017Q3

REPORT INFORMATION
  Report Type: Spontaneous
  Country: DK (occurrence: DK)
  Receive Date: 20170803
  Receipt Date: 20170803
  Transmission Date: 20171127
  Serious: Yes (Life-Threatening, Hospitalization, Other)
  Sender: FDA-Public Use
  Company Number: DK-ABBVIE-17P-044-1943312-00

PATIENT
  Age: 76 Year
  Sex: Female

DRUGS (9)
  1. VALPROIC ACID. [Suspect]
     Active Substance: VALPROIC ACID
     Indication: PARTIAL SEIZURES
     Dosage: EXTENDED RELEASE
     Route: 048
  2. AMIODARONE [Concomitant]
     Active Substance: AMIODARONE
     Indication: PRODUCT USED FOR UNKNOWN INDICATION
  3. BENDROFLUMETHIAZIDE [Concomitant]
     Active Substance: BENDROFLUMETHIAZIDE
     Indication: PRODUCT USED FOR UNKNOWN INDICATION
  4. WARFARIN [Concomitant]
     Active Substance: WARFARIN
     Indication: PRODUCT USED FOR UNKNOWN INDICATION
  5. BENDROFLUMETHIAZIDE [Concomitant]
     Active Substance: BENDROFLUMETHIAZIDE
     Indication: PRODUCT USED FOR UNKNOWN INDICATION
  6. VALPROIC ACID. [Suspect]
     Active Substance: VALPROIC ACID
     Dosage: EXTENDED RELEASE
     Route: 048
     Dates: start: 20130131
  7. CITALOPRAM [Concomitant]
     Active Substance: CITALOPRAM HYDROBROMIDE
     Indication: PRODUCT USED FOR UNKNOWN INDICATION
  8. LEVOTHYROXINE. [Concomitant]
     Active Substance: LEVOTHYROXINE
     Indication: PRODUCT USED FOR UNKNOWN INDICATION
  9. METOPROLOL. [Concomitant]
     Active Substance: METOPROLOL
     Indication: PRODUCT USED FOR UNKNOWN INDICATION

REACTIONS (13)
  - Toxic encephalopathy [Recovering/Resolving]
  - Bradykinesia [Recovering/Resolving]
  - Cognitive disorder [Recovering/Resolving]
  - Muscle rigidity [Recovering/Resolving]
  - Extrapyramidal disorder [Recovering/Resolving]
  - Psychomotor retardation [Recovering/Resolving]
  - Gait disturbance [Recovering/Resolving]
  - Resting tremor [Recovering/Resolving]
  - Amnesia [Recovering/Resolving]
  - Speech disorder [Recovering/Resolving]
  - Cerebral atrophy [Recovering/Resolving]
  - Aphasia [Recovering/Resolving]
  - Altered state of consciousness [Recovering/Resolving]

NARRATIVE: CASE EVENT DATE: 201201
